FAERS Safety Report 13811107 (Version 1)
Quarter: 2017Q3

REPORT INFORMATION
  Report Type: Spontaneous
  Country: US (occurrence: US)
  Receive Date: 20170728
  Receipt Date: 20170728
  Transmission Date: 20171127
  Serious: No
  Sender: FDA-Public Use
  Company Number: US-ROCHE-1069295

PATIENT
  Sex: Female

DRUGS (1)
  1. BONIVA [Suspect]
     Active Substance: IBANDRONATE SODIUM
     Indication: PRODUCT USED FOR UNKNOWN INDICATION
     Route: 065
     Dates: start: 20120507

REACTIONS (7)
  - Pain [Unknown]
  - Myalgia [Unknown]
  - Somnolence [Unknown]
  - Neck pain [Unknown]
  - Musculoskeletal pain [Unknown]
  - Insomnia [Unknown]
  - Groin pain [Unknown]
